FAERS Safety Report 23895715 (Version 1)
Quarter: 2024Q2

REPORT INFORMATION
  Report Type: Report from Study
  Country: US (occurrence: US)
  Receive Date: 20240524
  Receipt Date: 20240524
  Transmission Date: 20240716
  Serious: Yes (Hospitalization, Other)
  Sender: FDA-Public Use
  Company Number: US-BAXTER-2024BAX018571

PATIENT
  Age: 68 Year
  Sex: Male
  Weight: 68.5 kg

DRUGS (34)
  1. DOXORUBICIN [Suspect]
     Active Substance: DOXORUBICIN
     Indication: Diffuse large B-cell lymphoma
     Dosage: 92 MG, EVERY 3 WEEKS, ONGOING
     Route: 042
     Dates: start: 20240408
  2. CYCLOPHOSPHAMIDE [Suspect]
     Active Substance: CYCLOPHOSPHAMIDE
     Indication: Diffuse large B-cell lymphoma
     Dosage: 1380 MG, EVERY 3 WEEKS, ONGOING
     Route: 042
     Dates: start: 20240408
  3. EPCORITAMAB [Suspect]
     Active Substance: EPCORITAMAB
     Indication: Diffuse large B-cell lymphoma
     Dosage: 0.16 MG PRIMING DOSE; CYCLE 1, DAY 1, TOTAL
     Route: 058
     Dates: start: 20240408, end: 20240408
  4. EPCORITAMAB [Suspect]
     Active Substance: EPCORITAMAB
     Dosage: 0.8 MG INTERMEDIATE DOSE; C1, D8, TOTAL, ONGOING
     Route: 058
     Dates: start: 20240415
  5. VINCRISTINE [Suspect]
     Active Substance: VINCRISTINE
     Indication: Diffuse large B-cell lymphoma
     Dosage: 2 MG, EVERY 3 WEEKS, ONGOING
     Route: 042
     Dates: start: 20240408
  6. RITUXIMAB [Suspect]
     Active Substance: RITUXIMAB
     Indication: Diffuse large B-cell lymphoma
     Dosage: 700 MG, EVERY 3 WEEKS, ONGOING
     Route: 042
     Dates: start: 20240408
  7. PREDNISONE [Suspect]
     Active Substance: PREDNISONE
     Indication: Diffuse large B-cell lymphoma
     Dosage: 100 MG CYCLE 1-6, DAY 1-5, EVERY 1 DAYS, ONGOING
     Route: 048
     Dates: start: 20240408
  8. HYDROMORPHONE [Concomitant]
     Active Substance: HYDROMORPHONE
     Indication: Biopsy lymph gland
     Dosage: 0.2 MG, TOTAL
     Route: 065
     Dates: start: 20240311, end: 20240311
  9. HYDROMORPHONE [Concomitant]
     Active Substance: HYDROMORPHONE
     Indication: Infusion related reaction
     Dosage: 0.25 MG, TOTAL
     Route: 065
     Dates: start: 20240408, end: 20240408
  10. CLEOCIN [Concomitant]
     Active Substance: CLINDAMYCIN PHOSPHATE
     Indication: Biopsy lymph gland
     Dosage: 900 MG, TOTAL
     Route: 065
     Dates: start: 20240311, end: 20240311
  11. DEXAMETHASONE [Concomitant]
     Active Substance: DEXAMETHASONE
     Indication: Biopsy lymph gland
     Dosage: 4 MG, TOTAL
     Route: 065
     Dates: start: 20240311, end: 20240311
  12. LIPITOR [Concomitant]
     Active Substance: ATORVASTATIN CALCIUM
     Indication: Hyperlipidaemia
     Dosage: 20 MG, EVERY 1 DAYS, START DATE: 2011
     Route: 065
  13. JARDIANCE [Concomitant]
     Active Substance: EMPAGLIFLOZIN
     Indication: Hyperglycaemia
     Dosage: 25 MG, EVERY 1 DAYS, START DATE: 2021
     Route: 065
  14. FENOFIBRATE [Concomitant]
     Active Substance: FENOFIBRATE
     Indication: Hyperlipidaemia
     Dosage: 160 MG, EVERY 1 DAYS
     Route: 065
     Dates: start: 20230627
  15. NEURONTIN [Concomitant]
     Active Substance: GABAPENTIN
     Indication: Pruritus
     Dosage: 300 MG, EVERY 8 HOURS
     Route: 065
     Dates: start: 20240321
  16. GLUCOTROL XL [Concomitant]
     Active Substance: GLIPIZIDE
     Indication: Hyperglycaemia
     Dosage: 10 MG, EVERY 1 DAYS
     Route: 065
     Dates: start: 20230822
  17. JANUVIA [Concomitant]
     Active Substance: SITAGLIPTIN PHOSPHATE
     Indication: Hyperglycaemia
     Dosage: 100 MG, EVERY 1 DAYS, START DATE: 2009
     Route: 065
  18. ZOFRAN [Concomitant]
     Active Substance: ONDANSETRON HYDROCHLORIDE
     Indication: Prophylaxis of nausea and vomiting
     Dosage: 8 MG, AS NECESSARY
     Route: 065
     Dates: start: 20240408
  19. ZOFRAN [Concomitant]
     Active Substance: ONDANSETRON HYDROCHLORIDE
     Indication: Premedication
     Dosage: 24 MG, AS NECESSARY
     Route: 065
     Dates: start: 20240408
  20. TYLENOL [Concomitant]
     Active Substance: ACETAMINOPHEN
     Indication: Prophylaxis
     Dosage: 650 MG, AS NECESSARY
     Route: 065
     Dates: start: 20240408
  21. BENADRYL [Concomitant]
     Active Substance: DIPHENHYDRAMINE HYDROCHLORIDE
     Indication: Prophylaxis
     Dosage: 50 MG, AS NECESSARY
     Route: 065
     Dates: start: 20240408
  22. BENADRYL [Concomitant]
     Active Substance: DIPHENHYDRAMINE HYDROCHLORIDE
     Indication: Infusion related reaction
     Dosage: 25 MG, TOTAL
     Route: 065
     Dates: start: 20240408, end: 20240408
  23. PEPCID [Concomitant]
     Active Substance: FAMOTIDINE
     Indication: Prophylaxis
     Dosage: 20 MG, AS NECESSARY
     Route: 065
     Dates: start: 20240408
  24. ASPIRIN [Concomitant]
     Active Substance: ASPIRIN
     Indication: Hypertension
     Dosage: 81 MG, EVERY 1 DAYS, START DATE: 2011
     Route: 065
  25. QUESTRAN [Concomitant]
     Active Substance: CHOLESTYRAMINE
     Indication: Pruritus
     Dosage: 4 MG, 2/DAYS
     Route: 065
     Dates: start: 20240301, end: 20240327
  26. VIBRAMYCIN [Concomitant]
     Active Substance: DOXYCYCLINE
     Indication: Pruritus
     Dosage: 100 MG, 2/DAYS
     Route: 065
     Dates: start: 20240301, end: 20240324
  27. MICROZIDE [Concomitant]
     Active Substance: HYDROCHLOROTHIAZIDE
     Indication: Hypertension
     Dosage: 12.5 MG, EVERY 1 DAYS, START DATE: 2009
     Route: 065
  28. UBIQUINOL [Concomitant]
     Active Substance: UBIQUINOL
     Indication: Supplementation therapy
     Dosage: 100 MG, EVERY 1 DAYS
     Route: 065
     Dates: start: 20240311, end: 20240327
  29. OLMESARTAN [Concomitant]
     Active Substance: OLMESARTAN
     Indication: Hypertension
     Dosage: 40 MG, EVERY 1 DAYS, START DATE: 2009
     Route: 065
     Dates: end: 20240327
  30. PEGFILGRASTIM [Concomitant]
     Active Substance: PEGFILGRASTIM
     Indication: Prophylaxis
     Dosage: 6 MG, AS NECESSARY
     Route: 065
     Dates: start: 20240408
  31. PREDNISONE [Concomitant]
     Active Substance: PREDNISONE
     Indication: Pruritus
     Dosage: TAPER: 60, 40 MG, 20 MG, EVERY 1 DAYS
     Route: 065
     Dates: start: 20240313, end: 20240323
  32. PREDNISONE [Concomitant]
     Active Substance: PREDNISONE
     Indication: Premedication
     Dosage: 100 MG, EVERY 1 DAYS
     Route: 065
     Dates: start: 20240401, end: 20240406
  33. SODIUM CHLORIDE [Concomitant]
     Active Substance: SODIUM CHLORIDE
     Indication: Prophylaxis against dehydration
     Dosage: 500 ML, AS NECESSARY
     Route: 065
     Dates: start: 20240408
  34. SOLU-MEDROL [Concomitant]
     Active Substance: METHYLPREDNISOLONE SODIUM SUCCINATE
     Indication: Infusion related reaction
     Dosage: 125 MG, TOTAL
     Route: 065
     Dates: start: 20240408, end: 20240408

REACTIONS (1)
  - Atrial fibrillation [Recovered/Resolved]

NARRATIVE: CASE EVENT DATE: 20240412
